FAERS Safety Report 4268554-6 (Version None)
Quarter: 2004Q1

REPORT INFORMATION
  Report Type: 
  Country: None (occurrence: None)
  Receive Date: 20040108
  Receipt Date: 20031229
  Transmission Date: 20041129
  Serious: Yes (Hospitalization)
  Sender: FDA-Public Use
  Company Number: US-JNJFOC-20031205457

PATIENT
  Age: 76 Year
  Sex: Female
  Weight: 56.246 kg

DRUGS (13)
  1. INFLIXIMAB (INFLIXIMAB, RECOMBINANT) LYOPHILIZED POWDER [Suspect]
     Indication: RHEUMATOID ARTHRITIS
     Dosage: INTRAVENOUS
     Route: 042
     Dates: start: 20010111
  2. TAMBOCOR [Concomitant]
  3. ATENOLOL [Concomitant]
  4. LANOXIN [Concomitant]
  5. PREMPRO 14/14 [Concomitant]
  6. PREDNISONE [Concomitant]
  7. FOLIC ACID [Concomitant]
  8. COUMADIN [Concomitant]
  9. IMURAN [Concomitant]
  10. FOSAMAX (ALENDRONATYE SODIUM) [Concomitant]
  11. DARVOCET (PROPACET) [Concomitant]
  12. CALTRATE (CALCIUM CARBONATE) [Concomitant]
  13. MULTIVITAMIN (MULTIVITAMIN) [Concomitant]

REACTIONS (3)
  - BRONCHOPLEURAL FISTULA [None]
  - INFLAMMATION [None]
  - PULMONARY FIBROSIS [None]
